FAERS Safety Report 9054818 (Version 4)
Quarter: 2015Q3

REPORT INFORMATION
  Report Type: Report from Study
  Country: AR (occurrence: AR)
  Receive Date: 20130209
  Receipt Date: 20150726
  Transmission Date: 20151125
  Serious: Yes (Hospitalization, Disabling, Other)
  Sender: FDA-Public Use
  Company Number: PHHY2012AR118731

PATIENT
  Age: 63 Year
  Sex: Male

DRUGS (3)
  1. DIOVAN [Suspect]
     Active Substance: VALSARTAN
     Indication: BLOOD PRESSURE INCREASED
     Dosage: 160 MG, QD
     Route: 048
  2. ACETYL-L-CARNITINE [Concomitant]
     Indication: PRODUCT USED FOR UNKNOWN INDICATION
     Route: 065
  3. DIOVAN D [Suspect]
     Active Substance: HYDROCHLOROTHIAZIDE\VALSARTAN
     Indication: BLOOD PRESSURE INCREASED
     Dosage: 2 DF (160 MG VALS AND 12.5 MG HCTZ), QD
     Route: 048
     Dates: start: 2007

REACTIONS (15)
  - Fear [Not Recovered/Not Resolved]
  - Nervousness [Unknown]
  - Blood pressure systolic increased [Unknown]
  - Back pain [Unknown]
  - Hemiplegia [Recovered/Resolved]
  - Sensory loss [Unknown]
  - Dysphonia [Unknown]
  - Stress [Recovered/Resolved]
  - Expired product administered [Unknown]
  - Blood pressure increased [Unknown]
  - Cerebrovascular accident [Recovered/Resolved]
  - Speech disorder [Not Recovered/Not Resolved]
  - Gastric ulcer [Recovered/Resolved]
  - Deafness unilateral [Not Recovered/Not Resolved]
  - Feeling hot [Unknown]

NARRATIVE: CASE EVENT DATE: 20091129
